FAERS Safety Report 10883458 (Version 1)
Quarter: 2015Q1

REPORT INFORMATION
  Report Type: Spontaneous
  Country: US (occurrence: US)
  Receive Date: 20150303
  Receipt Date: 20150303
  Transmission Date: 20150721
  Serious: No
  Sender: FDA-Public Use
  Company Number: US-PFIZER INC-2015074782

PATIENT
  Age: 63 Year
  Sex: Male
  Weight: 215 kg

DRUGS (1)
  1. VIAGRA [Suspect]
     Active Substance: SILDENAFIL CITRATE
     Dosage: UNK

REACTIONS (4)
  - Erection increased [Unknown]
  - Pain [Unknown]
  - Intentional product misuse [Unknown]
  - Penis disorder [Unknown]

NARRATIVE: CASE EVENT DATE: 201502
